FAERS Safety Report 6070986-0 (Version None)
Quarter: 2009Q1

REPORT INFORMATION
  Report Type: 
  Country: None (occurrence: None)
  Receive Date: 20090209
  Receipt Date: 20090204
  Transmission Date: 20090719
  Serious: Yes (Other)
  Sender: FDA-Public Use
  Company Number: A0766626A

PATIENT
  Age: 32 Year
  Sex: Female

DRUGS (4)
  1. PAXIL [Suspect]
     Indication: DEPRESSION
     Dosage: 60MG PER DAY
     Route: 048
     Dates: start: 19900101, end: 20081208
  2. XANAX [Concomitant]
  3. LISINOPRIL [Concomitant]
  4. VALIUM [Concomitant]

REACTIONS (5)
  - CONVULSION [None]
  - DEPRESSION [None]
  - RASH [None]
  - SCIATICA [None]
  - SUICIDAL IDEATION [None]
